FAERS Safety Report 5645508-6 (Version None)
Quarter: 2008Q1

REPORT INFORMATION
  Report Type: 
  Country: None (occurrence: None)
  Receive Date: 20080229
  Receipt Date: 20080218
  Transmission Date: 20080703
  Serious: Yes (Hospitalization)
  Sender: FDA-Public Use
  Company Number: DE-WYE-H02598508

PATIENT
  Sex: Male

DRUGS (10)
  1. CORDAREX [Suspect]
     Indication: CARDIOMYOPATHY
     Route: 048
     Dates: start: 20070101, end: 20071101
  2. CORDAREX [Suspect]
     Indication: TACHYARRHYTHMIA
     Route: 048
     Dates: start: 20071101, end: 20080101
  3. CARVEDILOL [Concomitant]
     Indication: VENTRICULAR TACHYCARDIA
     Route: 048
  4. RAMIPRIL [Concomitant]
     Dosage: 1 TAB IN AM / 1/2 TAB IN PM
     Route: 048
  5. ALDACTONE [Concomitant]
     Dosage: UNKNOWN
     Route: 048
  6. TORSEMIDE [Concomitant]
     Route: 048
  7. THIAMAZOLE [Concomitant]
     Route: 048
  8. MARCUMAR [Concomitant]
     Dosage: UNKNOWN
     Route: 048
  9. NOVODIGAL [Concomitant]
     Indication: VENTRICULAR TACHYCARDIA
     Route: 048
  10. SIMVASTATIN [Concomitant]
     Route: 048

REACTIONS (3)
  - ALVEOLITIS [None]
  - PNEUMONIA PRIMARY ATYPICAL [None]
  - TACHYCARDIA [None]
